FAERS Safety Report 8523769-3 (Version None)
Quarter: 2012Q3

REPORT INFORMATION
  Report Type: 
  Country: None (occurrence: None)
  Receive Date: 20120720
  Receipt Date: 20120713
  Transmission Date: 20120928
  Serious: Yes (Other)
  Sender: FDA-Public Use
  Company Number: US-ASTELLAS-2012US005555

PATIENT
  Sex: Female
  Weight: 77 kg

DRUGS (6)
  1. VESICARE [Suspect]
     Indication: HYPERTONIC BLADDER
     Dosage: 1 DF, UID/QD
     Route: 048
     Dates: start: 20120301
  2. CALCIUM + VIT D [Concomitant]
     Indication: PRODUCT USED FOR UNKNOWN INDICATION
     Dosage: UNK
     Route: 065
  3. IBUPROFEN (ADVIL) [Concomitant]
     Indication: ARTHRALGIA
     Dosage: UNK
     Route: 065
  4. SYNTHROID [Concomitant]
     Indication: PRODUCT USED FOR UNKNOWN INDICATION
     Dosage: UNK
     Route: 065
  5. ONE A DAY                          /02262701/ [Concomitant]
     Indication: PRODUCT USED FOR UNKNOWN INDICATION
     Dosage: UNK
     Route: 065
  6. VESICARE [Suspect]
     Indication: INCONTINENCE

REACTIONS (5)
  - DYSPEPSIA [None]
  - DYSARTHRIA [None]
  - DIZZINESS [None]
  - BALANCE DISORDER [None]
  - VISION BLURRED [None]
